FAERS Safety Report 8824004 (Version 1)
Quarter: 2012Q4

REPORT INFORMATION
  Report Type: 
  Country: US (occurrence: US)
  Receive Date: 20121003
  Receipt Date: 20121003
  Transmission Date: 20130627
  Serious: Yes (Other)
  Sender: FDA-Public Use
  Company Number: US-BAXTER-2012BAX018842

PATIENT
  Age: 60 Year
  Sex: Male

DRUGS (3)
  1. DOPAMINE HYDROCHLORIDE [Suspect]
     Indication: VASOPRESSIVE THERAPY
     Route: 042
  2. DILTIAZEM [Concomitant]
     Indication: INTENTIONAL OVERDOSE
     Route: 048
  3. CALCIUM [Concomitant]
     Indication: HYPOTENSION
     Route: 042

REACTIONS (1)
  - Intestinal ischaemia [Recovered/Resolved]
